FAERS Safety Report 8889388 (Version 1)
Quarter: 2012Q4

REPORT INFORMATION
  Report Type: Spontaneous
  Country: US (occurrence: None)
  Receive Date: 20121101
  Receipt Date: 20121101
  Transmission Date: 20130627
  Serious: Yes (Hospitalization)
  Sender: FDA-Public Use
  Company Number: None

PATIENT
  Age: 73 Year
  Sex: Female
  Weight: 74.39 kg

DRUGS (1)
  1. DEFINITY [Suspect]
     Route: 040
     Dates: start: 20121026, end: 20121026

REACTIONS (2)
  - Rash [None]
  - Renal failure acute [None]
